FAERS Safety Report 9820737 (Version 1)
Quarter: 2013Q4

REPORT INFORMATION
  Report Type: Spontaneous
  Country: US (occurrence: None)
  Receive Date: 20131028
  Receipt Date: 20131028
  Transmission Date: 20140711
  Serious: Yes (Other)
  Sender: FDA-Public Use
  Company Number: 2013US001034

PATIENT
  Age: 62 Year
  Sex: Female
  Weight: 59.4 kg

DRUGS (7)
  1. ICLUSIG [Suspect]
     Indication: CHRONIC MYELOID LEUKAEMIA
     Route: 048
     Dates: start: 20130109, end: 20130114
  2. VALTREX (VALACICLOVIR HYDROCHLORIDE) [Concomitant]
  3. METOPROLOL (METOPROLOL TARTRATE) [Concomitant]
  4. BACTRIM (SULFAMETHOXAZOLE, TRIMETHOPRIM) [Concomitant]
  5. ONDANSETRON (ONDANSETRON) [Concomitant]
  6. SYNTHROID (LEVOTHYROXINE SODIUM) [Concomitant]
  7. CRESTOR (ROSUVASATIN CALCIJM) [Concomitant]

REACTIONS (2)
  - Oedema [None]
  - Erythema [None]
